FAERS Safety Report 22944010 (Version 2)
Quarter: 2024Q2

REPORT INFORMATION
  Report Type: Report from Study
  Country: US (occurrence: US)
  Receive Date: 20230914
  Receipt Date: 20240511
  Transmission Date: 20240716
  Serious: Yes (Other)
  Sender: FDA-Public Use
  Company Number: US-JAZZ-2022-US-002344

PATIENT
  Age: 26 Year
  Sex: Female

DRUGS (6)
  1. XYREM [Suspect]
     Active Substance: SODIUM OXYBATE
     Indication: Narcolepsy
     Dosage: 2.25GRAM, BID AT BEDTIME
     Route: 048
     Dates: start: 201303, end: 201304
  2. XYREM [Suspect]
     Active Substance: SODIUM OXYBATE
     Indication: Cataplexy
     Dosage: DOSE ADJUSTMENT
     Route: 048
     Dates: start: 201304, end: 202004
  3. XYREM [Suspect]
     Active Substance: SODIUM OXYBATE
     Indication: Somnolence
     Dosage: 4.5GRAM, BID AT BEDTIME
     Route: 048
     Dates: start: 202004
  4. ADDERALL [Concomitant]
     Active Substance: AMPHETAMINE ASPARTATE\AMPHETAMINE SULFATE\DEXTROAMPHETAMINE SACCHARATE\DEXTROAMPHETAMINE SULFATE
     Indication: Product used for unknown indication
     Dosage: 20 MG, QD, TABLET
     Dates: start: 20151207
  5. ADDERALL [Concomitant]
     Active Substance: AMPHETAMINE ASPARTATE\AMPHETAMINE SULFATE\DEXTROAMPHETAMINE SACCHARATE\DEXTROAMPHETAMINE SULFATE
     Dosage: 20 MG, CAPSULE
     Dates: start: 20151123
  6. OMEPRAZOLE [Concomitant]
     Active Substance: DONEPEZIL HYDROCHLORIDE\OMEPRAZOLE\OMEPRAZOLE MAGNESIUM
     Indication: Product used for unknown indication
     Dosage: UNK
     Dates: start: 20170501

REACTIONS (4)
  - Seizure [Unknown]
  - Suicide attempt [Unknown]
  - Hypothyroidism [Unknown]
  - Intentional product use issue [Unknown]

NARRATIVE: CASE EVENT DATE: 20171001
